FAERS Safety Report 9428308 (Version 1)
Quarter: 2013Q3

REPORT INFORMATION
  Report Type: Report from Study
  Country: US (occurrence: US)
  Receive Date: 20130730
  Receipt Date: 20130730
  Transmission Date: 20140515
  Serious: No
  Sender: FDA-Public Use
  Company Number: US-ABBOTT-12P-163-0964875-00

PATIENT
  Age: 65 Year
  Sex: Female

DRUGS (4)
  1. NIASPAN (COATED) 500MG [Suspect]
     Indication: PRODUCT USED FOR UNKNOWN INDICATION
     Dosage: AT BEDTIME
     Dates: start: 201207
  2. NIASPAN (COATED) 500MG [Suspect]
     Dosage: 250 MG, 1/2 TAB AT BEDTIME
     Dates: start: 201207
  3. ASA [Concomitant]
     Indication: FLUSHING
  4. UNKNOWN INSULIN [Concomitant]
     Indication: PRODUCT USED FOR UNKNOWN INDICATION

REACTIONS (3)
  - Wrong technique in drug usage process [Unknown]
  - Skin burning sensation [Recovered/Resolved]
  - Flushing [Recovered/Resolved]
